FAERS Safety Report 11009078 (Version 1)
Quarter: 2015Q2

REPORT INFORMATION
  Report Type: Spontaneous
  Country: GB (occurrence: GB)
  Receive Date: 20150410
  Receipt Date: 20150410
  Transmission Date: 20150821
  Serious: Yes (Other)
  Sender: FDA-Public Use
  Company Number: PHHY2015GB039220

PATIENT

DRUGS (3)
  1. PARACETAMOL [Suspect]
     Active Substance: ACETAMINOPHEN
     Indication: ARTHRALGIA
     Dosage: UNK
     Route: 065
  2. CAFFEINE. [Suspect]
     Active Substance: CAFFEINE
     Indication: ARTHRALGIA
     Dosage: UNK
     Route: 065
  3. VEGANIN (ACETAMINOPHEN\ASPIRIN\CODEINE) [Suspect]
     Active Substance: ACETAMINOPHEN\ASPIRIN\CODEINE
     Indication: HEADACHE
     Dosage: UNK
     Route: 065

REACTIONS (3)
  - Gastrooesophageal reflux disease [Not Recovered/Not Resolved]
  - Vision blurred [Not Recovered/Not Resolved]
  - Dyspepsia [Not Recovered/Not Resolved]
